FAERS Safety Report 6161111-6 (Version None)
Quarter: 2009Q2

REPORT INFORMATION
  Report Type: 
  Country: None (occurrence: None)
  Receive Date: 20090417
  Receipt Date: 20090417
  Transmission Date: 20091009
  Serious: Yes (Other)
  Sender: FDA-Public Use
  Company Number: None

PATIENT
  Sex: Female
  Weight: 68.9467 kg

DRUGS (2)
  1. LEVOTHYROXINE SODIUM [Suspect]
     Indication: THYROID CANCER
     Dosage: 1 TABLET 6 DAYS 1/2 TAB ON SUNDAY 1 X DAY PO  (SEE IMAGE FOR DATES OF USE)
     Route: 048
     Dates: start: 19960101
  2. LEVOTHYROXINE SODIUM [Suspect]
     Indication: THYROIDECTOMY
     Dosage: 1 TABLET 6 DAYS 1/2 TAB ON SUNDAY 1 X DAY PO  (SEE IMAGE FOR DATES OF USE)
     Route: 048
     Dates: start: 19960101

REACTIONS (7)
  - ABDOMINAL DISTENSION [None]
  - ALOPECIA [None]
  - ANGIOEDEMA [None]
  - BLOOD PRESSURE INCREASED [None]
  - CONSTIPATION [None]
  - DISCOMFORT [None]
  - DYSPNOEA [None]
